FAERS Safety Report 16864819 (Version 1)
Quarter: 2019Q3

REPORT INFORMATION
  Report Type: Spontaneous
  Country: DE (occurrence: DE)
  Receive Date: 20190929
  Receipt Date: 20190929
  Transmission Date: 20191005
  Serious: Yes (Congenital Anomaly, Other)
  Sender: FDA-Public Use
  Company Number: PHHY2019DE223058

PATIENT

DRUGS (1)
  1. LEVETIRACETAM. [Suspect]
     Active Substance: LEVETIRACETAM
     Indication: FOETAL EXPOSURE DURING PREGNANCY
     Dosage: UNK UKN, UNK (MATRENAL DOSE: NOT REPORTED)
     Route: 064

REACTIONS (2)
  - Congenital anomaly [Unknown]
  - Foetal exposure during pregnancy [Unknown]
